FAERS Safety Report 4411051-5 (Version None)
Quarter: 2004Q2

REPORT INFORMATION
  Report Type: 
  Country: None (occurrence: None)
  Receive Date: 20040630
  Receipt Date: 20040511
  Transmission Date: 20050107
  Serious: No
  Sender: FDA-Public Use
  Company Number: 04P-163-0260373-00

PATIENT
  Age: 32 Year
  Sex: Female
  Weight: 44.4525 kg

DRUGS (3)
  1. HUMIRA [Suspect]
     Indication: RHEUMATOID ARTHRITIS
     Dosage: 40 MG, 1 IN 2 WK, SUBCUTANEOUS
     Route: 058
     Dates: start: 20040401
  2. VALACYCLOVIR HCL [Concomitant]
  3. FLUTICASONE PROPIONATE [Concomitant]

REACTIONS (8)
  - CYSTITIS [None]
  - DIZZINESS [None]
  - EYE MOVEMENT DISORDER [None]
  - INFECTION [None]
  - PARAESTHESIA [None]
  - TREMOR [None]
  - UNEVALUABLE EVENT [None]
  - VERTIGO [None]
